FAERS Safety Report 22114588 (Version 1)
Quarter: 2023Q1

REPORT INFORMATION
  Report Type: Spontaneous
  Country: SI (occurrence: SI)
  Receive Date: 20230320
  Receipt Date: 20230320
  Transmission Date: 20230418
  Serious: Yes (Other)
  Sender: FDA-Public Use
  Company Number: None

PATIENT
  Age: 61 Year
  Sex: Female

DRUGS (1)
  1. EUTHYROX [Suspect]
     Active Substance: LEVOTHYROXINE SODIUM
     Indication: Product used for unknown indication
     Route: 048
     Dates: start: 202205

REACTIONS (4)
  - Uterine haemorrhage [Not Recovered/Not Resolved]
  - Arrhythmia [Not Recovered/Not Resolved]
  - Restlessness [Not Recovered/Not Resolved]
  - Sleep disorder [Not Recovered/Not Resolved]
